FAERS Safety Report 18226712 (Version 1)
Quarter: 2020Q3

REPORT INFORMATION
  Report Type: Spontaneous
  Country: US (occurrence: US)
  Receive Date: 20200903
  Receipt Date: 20200903
  Transmission Date: 20201103
  Serious: No
  Sender: FDA-Public Use
  Company Number: None

PATIENT
  Age: 61 Year
  Sex: Female
  Weight: 58.95 kg

DRUGS (12)
  1. VITAMINS [Concomitant]
     Active Substance: VITAMINS
  2. TOPAMAX [Suspect]
     Active Substance: TOPIRAMATE
     Indication: MIGRAINE
     Dosage: ??          QUANTITY:1 TABLET(S);?
     Route: 048
     Dates: start: 20191126, end: 20200721
  3. PROAIR HFA [Concomitant]
     Active Substance: ALBUTEROL SULFATE
  4. NEXIUM [Concomitant]
     Active Substance: ESOMEPRAZOLE MAGNESIUM
  5. LASIX [Concomitant]
     Active Substance: FUROSEMIDE
  6. PLAQUENIL [Concomitant]
     Active Substance: HYDROXYCHLOROQUINE SULFATE
  7. CELEBREX [Concomitant]
     Active Substance: CELECOXIB
  8. IMITREX [Concomitant]
     Active Substance: SUMATRIPTAN SUCCINATE
  9. ESSENTIAL OILS. [Concomitant]
     Active Substance: ESSENTIAL OILS
  10. AVAPRO [Concomitant]
     Active Substance: IRBESARTAN
  11. SINGULAIR [Concomitant]
     Active Substance: MONTELUKAST SODIUM
  12. UBRELVY [Concomitant]
     Active Substance: UBROGEPANT

REACTIONS (6)
  - Diarrhoea [None]
  - Contraindicated product prescribed [None]
  - Crying [None]
  - Contraindicated product administered [None]
  - Depression [None]
  - Weight decreased [None]

NARRATIVE: CASE EVENT DATE: 20200601
